FAERS Safety Report 7204196-8 (Version None)
Quarter: 2010Q4

REPORT INFORMATION
  Report Type: 
  Country: None (occurrence: None)
  Receive Date: 20101230
  Receipt Date: 20101202
  Transmission Date: 20110411
  Serious: Yes (Hospitalization)
  Sender: FDA-Public Use
  Company Number: US-BAYER-201034704NA

PATIENT
  Sex: Female
  Weight: 84 kg

DRUGS (8)
  1. YAZ [Suspect]
     Indication: CONTRACEPTION
     Dosage: UNK UNK, UNK
     Route: 048
     Dates: start: 20080125, end: 20081008
  2. YAZ [Suspect]
     Indication: POLYCYSTIC OVARIES
  3. NORTRIPTYLINE [Concomitant]
     Indication: FIBROMYALGIA
     Dosage: UNK
     Dates: start: 19960101
  4. EFFEXOR [Concomitant]
     Indication: FIBROMYALGIA
     Dosage: UNK
     Dates: start: 20050101
  5. ACIPHEX [Concomitant]
     Indication: GASTROOESOPHAGEAL REFLUX DISEASE
     Dosage: UNK
     Dates: start: 20050101, end: 20100101
  6. TUMS [CALCIUM CARBONATE] [Concomitant]
  7. BENADRYL [Concomitant]
  8. TRAMADOL HCL [Concomitant]

REACTIONS (4)
  - CHEST DISCOMFORT [None]
  - DEEP VEIN THROMBOSIS [None]
  - DYSPNOEA [None]
  - PULMONARY EMBOLISM [None]
